FAERS Safety Report 6720250-9 (Version None)
Quarter: 2010Q2

REPORT INFORMATION
  Report Type: 
  Country: None (occurrence: None)
  Receive Date: 20100511
  Receipt Date: 20100428
  Transmission Date: 20101027
  Serious: Yes (Other)
  Sender: FDA-Public Use
  Company Number: PHEH2006US03610

PATIENT
  Sex: Female
  Weight: 79.365 kg

DRUGS (26)
  1. AREDIA [Suspect]
     Dosage: 30 MG, Q MONTHLY
     Dates: start: 20030718
  2. ZOMETA [Suspect]
     Indication: METASTASES TO BONE
     Dosage: 4 MG MONTHLY
     Dates: start: 20030718, end: 20051201
  3. ZOMETA [Suspect]
     Dosage: 2 MG EVERY 3 WEEKS
     Dates: start: 20060526
  4. FEMARA [Concomitant]
     Indication: BREAST CANCER
     Dosage: 2.5 MG, QD
     Route: 048
  5. FASLODEX [Concomitant]
  6. XELODA [Concomitant]
     Indication: BREAST CANCER
     Dosage: UNK, BID
     Route: 048
  7. TAXOL [Concomitant]
     Dosage: UNK
  8. CARBOPLATIN [Concomitant]
     Dosage: UNK
  9. KYTRIL [Concomitant]
     Dosage: 1 TAB, BID
     Route: 048
  10. AVELOX [Concomitant]
     Dosage: 400 MG, QD
     Route: 048
  11. LYRICA [Concomitant]
  12. CEPHALEXIN [Concomitant]
  13. AMOXICILLIN [Concomitant]
  14. METRONIDAZOLE [Concomitant]
     Dosage: 500 MG, UNK
  15. AROMASIN [Concomitant]
  16. MEGESTROL ACETATE [Concomitant]
  17. PREDNISONE [Concomitant]
  18. ULTRAM [Concomitant]
  19. OXYCODONE [Concomitant]
  20. TRAMADOL HCL [Concomitant]
  21. RANITIDINE [Concomitant]
  22. ZITHROMAX [Concomitant]
  23. LEVAQUIN [Concomitant]
  24. NEXIUM [Concomitant]
  25. DEXAMETHASONE [Concomitant]
  26. CIMETIDINE [Concomitant]

REACTIONS (46)
  - ABDOMINAL PAIN [None]
  - ABDOMINAL PAIN UPPER [None]
  - ALVEOLAR OSTEITIS [None]
  - AMNESIA [None]
  - ANHEDONIA [None]
  - ANXIETY [None]
  - BLINDNESS UNILATERAL [None]
  - BONE DEBRIDEMENT [None]
  - BONE DENSITY DECREASED [None]
  - BONE DISORDER [None]
  - BREAST CANCER [None]
  - CATHETER PLACEMENT [None]
  - CYST [None]
  - DEBRIDEMENT [None]
  - DEMENTIA [None]
  - DEPRESSION [None]
  - DISEASE PROGRESSION [None]
  - DYSGEUSIA [None]
  - DYSPNOEA [None]
  - FALL [None]
  - FATIGUE [None]
  - GINGIVAL PAIN [None]
  - GINGIVITIS [None]
  - HAEMOGLOBIN DECREASED [None]
  - HYPERCALCAEMIA [None]
  - IMPAIRED HEALING [None]
  - JAW OPERATION [None]
  - KNEE ARTHROPLASTY [None]
  - LOOSE TOOTH [None]
  - LUNG CANCER METASTATIC [None]
  - MEDICAL DEVICE COMPLICATION [None]
  - METASTASES TO EYE [None]
  - METASTASES TO LIVER [None]
  - METASTASES TO STOMACH [None]
  - NAUSEA [None]
  - OSTEONECROSIS OF JAW [None]
  - PAIN [None]
  - PAIN IN JAW [None]
  - PERIODONTAL DISEASE [None]
  - SENSITIVITY OF TEETH [None]
  - SINUS DISORDER [None]
  - SWELLING [None]
  - TOOTH EXTRACTION [None]
  - VENA CAVA INJURY [None]
  - VOMITING [None]
  - X-RAY [None]
